FAERS Safety Report 9176435 (Version 1)
Quarter: 2013Q1

REPORT INFORMATION
  Report Type: Spontaneous
  Country: US (occurrence: None)
  Receive Date: 20130320
  Receipt Date: 20130320
  Transmission Date: 20140127
  Serious: No
  Sender: FDA-Public Use
  Company Number: None

PATIENT
  Age: 24 Year
  Sex: Male
  Weight: 86.18 kg

DRUGS (2)
  1. CALCIUM CARBONATE\VITAMIN D [Suspect]
     Dosage: 1 TAB DAILY PO
  2. CALCIUM CARBONATE\VITAMIN D [Suspect]

REACTIONS (3)
  - Product name confusion [None]
  - Circumstance or information capable of leading to medication error [None]
  - Product label issue [None]
